FAERS Safety Report 9498724 (Version 2)
Quarter: 2013Q4

REPORT INFORMATION
  Report Type: Spontaneous
  Country: GB (occurrence: GB)
  Receive Date: 20130904
  Receipt Date: 20131114
  Transmission Date: 20140711
  Serious: Yes (Other)
  Sender: FDA-Public Use
  Company Number: GB-WATSON-2013-15574

PATIENT
  Sex: Male

DRUGS (4)
  1. TRAMADOL (UNKNOWN) [Suspect]
     Indication: PAIN
     Dosage: 100 MG, UNK
     Route: 064
  2. VENLAFAXINE (UNKNOWN) [Suspect]
     Indication: AFFECTIVE DISORDER
     Dosage: 225 MG, UNK
     Route: 064
  3. PREGABALIN (UNKNOWN) [Suspect]
     Indication: PRODUCT USED FOR UNKNOWN INDICATION
     Dosage: UNK
     Route: 064
  4. TEGRETOL [Suspect]
     Indication: PAIN
     Dosage: 400 MG, UNK
     Route: 064

REACTIONS (8)
  - Neonatal respiratory distress syndrome [Unknown]
  - Apgar score low [Unknown]
  - Jaundice neonatal [Unknown]
  - Head circumference abnormal [Unknown]
  - Premature baby [Unknown]
  - Low birth weight baby [Unknown]
  - Exposure during breast feeding [Unknown]
  - Foetal exposure during pregnancy [Unknown]
